FAERS Safety Report 24795340 (Version 1)
Quarter: 2024Q4

REPORT INFORMATION
  Report Type: Spontaneous
  Country: US (occurrence: US)
  Receive Date: 20241231
  Receipt Date: 20241231
  Transmission Date: 20250114
  Serious: No
  Sender: PFIZER
  Company Number: US-PFIZER INC-202400333144

PATIENT
  Age: 31 Year

DRUGS (1)
  1. CIBINQO [Suspect]
     Active Substance: ABROCITINIB
     Dosage: 100MG

REACTIONS (3)
  - Rash [Unknown]
  - Pruritus [Unknown]
  - Condition aggravated [Unknown]
